FAERS Safety Report 15588626 (Version 1)
Quarter: 2018Q4

REPORT INFORMATION
  Report Type: Spontaneous
  Country: IT (occurrence: IT)
  Receive Date: 20181106
  Receipt Date: 20181106
  Transmission Date: 20190205
  Serious: Yes (Hospitalization)
  Sender: FDA-Public Use
  Company Number: PHHY2018IT144094

PATIENT
  Age: 63 Year
  Sex: Male

DRUGS (3)
  1. PALEXIA [Suspect]
     Active Substance: TAPENTADOL HYDROCHLORIDE
     Indication: DENTAL OPERATION
     Dosage: UNK
     Route: 048
  2. AMOXICILLIN. [Suspect]
     Active Substance: AMOXICILLIN
     Indication: DENTAL OPERATION
     Dosage: 2 G, QD
     Route: 048
     Dates: start: 20181015, end: 20181018
  3. CARDIOASPIRIN [Concomitant]
     Active Substance: ASPIRIN
     Indication: POLYCYTHAEMIA
     Dosage: UNK
     Route: 048

REACTIONS (4)
  - Hyperhidrosis [Recovering/Resolving]
  - Vomiting [Recovering/Resolving]
  - Rash [Recovering/Resolving]
  - Hypotension [Recovering/Resolving]

NARRATIVE: CASE EVENT DATE: 20181018
